FAERS Safety Report 9140005 (Version 1)
Quarter: 2013Q1

REPORT INFORMATION
  Report Type: Spontaneous
  Country: US (occurrence: None)
  Receive Date: 20130204
  Receipt Date: 20130204
  Transmission Date: 20140127
  Serious: Yes (Death)
  Sender: FDA-Public Use
  Company Number: NSR_00936_2013

PATIENT
  Age: 39 Year
  Sex: Female

DRUGS (7)
  1. TRAMADOL [Suspect]
     Dosage: (DF  ORAL)?(UNKNOWN UNTIL NOT CONTINUING)
     Route: 048
  2. HYDROCODONE [Suspect]
     Dosage: (DF  ORAL)?(UNKNOWN UNTIL NOT CONTINUING)
     Route: 048
  3. DIAZEPAM [Suspect]
     Dosage: (DF  ORAL)?(UNKNOWN UNTIL NOT CONTINUING)
     Route: 048
  4. ACETAMINOPHEN DIPHENHYDRAMINE [Suspect]
     Dosage: (DF  ORAL)?(UNKNOWN UNTIL NOT CONTINUING)
     Route: 048
  5. LISINOPRIL [Suspect]
     Dosage: (DF  ORAL)?(UNKNOWN UNTIL NOT CONTINUING)
     Route: 048
  6. PROMETHAZINE [Suspect]
     Dosage: (DF  ORAL)?(UNKNOWN UNTIL NOT CONTINUING)
     Route: 048
  7. TRAZODONE [Suspect]
     Dosage: (DF  ORAL)?(UNKNOWN UNTIL NOT CONTINUING)
     Route: 048

REACTIONS (2)
  - Cardiac arrest [None]
  - Respiratory arrest [None]
